FAERS Safety Report 23189061 (Version 3)
Quarter: 2024Q1

REPORT INFORMATION
  Report Type: Report from Study
  Country: US (occurrence: US)
  Receive Date: 20231115
  Receipt Date: 20240110
  Transmission Date: 20240410
  Serious: Yes (Hospitalization, Other)
  Sender: FDA-Public Use
  Company Number: US-JNJFOC-20231119721

PATIENT
  Age: 70 Year
  Sex: Female

DRUGS (4)
  1. SPRAVATO [Suspect]
     Active Substance: ESKETAMINE
     Indication: Depression
     Dosage: ^56 MG, 6 TOTAL DOSES^
     Dates: start: 20231010, end: 20231026
  2. SPRAVATO [Suspect]
     Active Substance: ESKETAMINE
     Dosage: ^84 MG, RECENT ADMINISTERED DOSE^
     Dates: start: 20231031, end: 20231031
  3. SPRAVATO [Suspect]
     Active Substance: ESKETAMINE
     Dates: start: 20231106, end: 20231106
  4. SPRAVATO [Suspect]
     Active Substance: ESKETAMINE
     Dates: start: 2023, end: 202312

REACTIONS (5)
  - Depression [Unknown]
  - Anxiety [Unknown]
  - Hypertension [Unknown]
  - Headache [Recovered/Resolved]
  - Fatigue [Unknown]

NARRATIVE: CASE EVENT DATE: 20231031
